FAERS Safety Report 10369872 (Version 1)
Quarter: 2014Q3

REPORT INFORMATION
  Report Type: Not Available
  Country: US (occurrence: US)
  Receive Date: 20140808
  Receipt Date: 20140808
  Transmission Date: 20150326
  Serious: No
  Sender: FDA-Public Use
  Company Number: US-LUPIN PHARMACEUTICALS INC.-E2B_00001584

PATIENT
  Age: 74 Year
  Sex: Female
  Weight: 76.27 kg

DRUGS (8)
  1. HUMALOG [Concomitant]
     Active Substance: INSULIN LISPRO
     Indication: DIABETES MELLITUS
     Route: 058
  2. ACIPHEX EC [Concomitant]
     Indication: PRODUCT USED FOR UNKNOWN INDICATION
  3. LANTUS [Concomitant]
     Active Substance: INSULIN GLARGINE
     Indication: DIABETES MELLITUS
     Route: 058
  4. ASPIRIN. [Concomitant]
     Active Substance: ASPIRIN
     Indication: PRODUCT USED FOR UNKNOWN INDICATION
  5. ZINC [Concomitant]
     Active Substance: ZINC\ZINC CHLORIDE
     Indication: PRODUCT USED FOR UNKNOWN INDICATION
  6. QUINAPRIL [Suspect]
     Active Substance: QUINAPRIL\QUINAPRIL HYDROCHLORIDE
     Indication: HYPERTENSION
     Dates: start: 20131207, end: 20131215
  7. METFORMIN [Concomitant]
     Active Substance: METFORMIN HYDROCHLORIDE
     Indication: DIABETES MELLITUS
     Dosage: 2500
  8. VITAMIN D [Concomitant]
     Active Substance: CHOLECALCIFEROL
     Indication: PRODUCT USED FOR UNKNOWN INDICATION

REACTIONS (6)
  - Pain in extremity [Recovered/Resolved]
  - Neck pain [Recovered/Resolved]
  - Pain in jaw [Recovered/Resolved]
  - Productive cough [Recovered/Resolved]
  - Cough [Not Recovered/Not Resolved]
  - Chest pain [Recovered/Resolved]

NARRATIVE: CASE EVENT DATE: 20131209
